FAERS Safety Report 24735403 (Version 1)
Quarter: 2024Q4

REPORT INFORMATION
  Report Type: Spontaneous
  Country: JP (occurrence: JP)
  Receive Date: 20241215
  Receipt Date: 20241215
  Transmission Date: 20250115
  Serious: Yes (Other)
  Sender: AMGEN
  Company Number: JP-AMGEN-JPNSP2024245770

PATIENT

DRUGS (2)
  1. BLINCYTO [Suspect]
     Active Substance: BLINATUMOMAB
     Indication: Acute lymphocytic leukaemia
     Dosage: UNK, CONTINUING, DRIP INFUSION
     Route: 040
  2. PONATINIB [Concomitant]
     Active Substance: PONATINIB
     Indication: Acute lymphocytic leukaemia
     Dosage: 15-45 MG

REACTIONS (5)
  - Pulmonary alveolar haemorrhage [Unknown]
  - Leukoencephalopathy [Unknown]
  - Delirium [Unknown]
  - Pneumonia [Unknown]
  - Arteriosclerosis [Unknown]
